FAERS Safety Report 15192996 (Version 1)
Quarter: 2018Q3

REPORT INFORMATION
  Report Type: Spontaneous
  Country: US (occurrence: US)
  Receive Date: 20180725
  Receipt Date: 20180725
  Transmission Date: 20181010
  Serious: Yes (Hospitalization)
  Sender: FDA-Public Use
  Company Number: US-HORIZON-PRE-0321-2018

PATIENT
  Age: 46 Year
  Sex: Female

DRUGS (2)
  1. PREDNISONE. [Suspect]
     Active Substance: PREDNISONE
     Indication: COUGH
  2. FLUTICASONE. [Suspect]
     Active Substance: FLUTICASONE

REACTIONS (2)
  - Aspergillus infection [Recovered/Resolved]
  - Pneumothorax [Recovered/Resolved]
